FAERS Safety Report 15932461 (Version 1)
Quarter: 2019Q1

REPORT INFORMATION
  Report Type: Spontaneous
  Country: US (occurrence: US)
  Receive Date: 20190117
  Receipt Date: 20190117
  Transmission Date: 20190417
  Serious: Yes (Other)
  Sender: FDA-Public Use
  Company Number: None

PATIENT
  Age: 81 Year
  Sex: Female
  Weight: 63.05 kg

DRUGS (8)
  1. AFLIBERCEPT 1MG [Suspect]
     Active Substance: AFLIBERCEPT
     Indication: RETINAL VEIN OCCLUSION
     Route: 058
     Dates: start: 201807, end: 20181008
  2. IBUPROFEN. [Concomitant]
     Active Substance: IBUPROFEN
  3. ISOSORBIDE MONO ER [Concomitant]
  4. SPIRONOLACTONE. [Concomitant]
     Active Substance: SPIRONOLACTONE
  5. GABAPENTIN. [Concomitant]
     Active Substance: GABAPENTIN
  6. SIMVASTATIN. [Concomitant]
     Active Substance: SIMVASTATIN
  7. ASPIRIN (81MG) [Concomitant]
  8. VITAMIN D [Concomitant]
     Active Substance: CHOLECALCIFEROL

REACTIONS (6)
  - Dark circles under eyes [None]
  - Neck pain [None]
  - Hordeolum [None]
  - Feeling abnormal [None]
  - Oropharyngeal pain [None]
  - Visual impairment [None]
